FAERS Safety Report 17104620 (Version 1)
Quarter: 2019Q4

REPORT INFORMATION
  Report Type: Spontaneous
  Country: US (occurrence: US)
  Receive Date: 20191203
  Receipt Date: 20191203
  Transmission Date: 20200122
  Serious: No
  Sender: FDA-Public Use
  Company Number: US-UCBSA-2018006054

PATIENT
  Age: 67 Year
  Sex: Female
  Weight: 57.15 kg

DRUGS (1)
  1. CIMZIA [Suspect]
     Active Substance: CERTOLIZUMAB PEGOL
     Indication: RHEUMATOID ARTHRITIS
     Dosage: 200 MG, EV 2 WEEKS(QOW)
     Route: 058

REACTIONS (3)
  - Syringe issue [Unknown]
  - Sinusitis [Unknown]
  - Product quality issue [Unknown]

NARRATIVE: CASE EVENT DATE: 201810
